FAERS Safety Report 18171170 (Version 1)
Quarter: 2020Q3

REPORT INFORMATION
  Report Type: Spontaneous
  Country: US (occurrence: US)
  Receive Date: 20200819
  Receipt Date: 20200819
  Transmission Date: 20201103
  Serious: No
  Sender: FDA-Public Use
  Company Number: US-OREXO US, INC.-ORE202003-000029

PATIENT
  Age: 64 Year
  Sex: Male

DRUGS (2)
  1. ZUBSOLV [Suspect]
     Active Substance: BUPRENORPHINE HYDROCHLORIDE\NALOXONE HYDROCHLORIDE
     Dosage: THE NEXT DAY HE TOOK A QUARTER TABLET AND THE DAY AFTER THAT HE TOOK THE OTHER QUARTER OF THE TABLET
     Dates: end: 201905
  2. ZUBSOLV [Suspect]
     Active Substance: BUPRENORPHINE HYDROCHLORIDE\NALOXONE HYDROCHLORIDE
     Indication: DRUG WITHDRAWAL SYNDROME
     Dosage: INITIALLY TOOK HALF TABLET
     Dates: start: 201905

REACTIONS (3)
  - Euphoric mood [Unknown]
  - Wrong technique in product usage process [Unknown]
  - Product prescribing error [Unknown]

NARRATIVE: CASE EVENT DATE: 201905
